FAERS Safety Report 4829408-7 (Version None)
Quarter: 2005Q4

REPORT INFORMATION
  Report Type: 
  Country: None (occurrence: None)
  Receive Date: 20051116
  Receipt Date: 20051017
  Transmission Date: 20060501
  Serious: Yes (Death)
  Sender: FDA-Public Use
  Company Number: PHHO2005JP16434

PATIENT
  Age: 47 Year
  Sex: Female

DRUGS (43)
  1. ZOLEDRONIC ACID [Suspect]
     Indication: HYPERCALCAEMIA OF MALIGNANCY
     Dosage: 4 MG, ONCE/SINGLE
     Route: 042
     Dates: start: 20050914, end: 20050914
  2. MUCODYNE [Concomitant]
  3. LASIX [Concomitant]
  4. COTRIM [Concomitant]
  5. PARIET [Concomitant]
  6. PREDONINE [Concomitant]
  7. ISODINE [Concomitant]
  8. ISOTONIC SODIUM CHLORIDE SOLUTIONS [Concomitant]
  9. CARBENIN [Concomitant]
  10. NEUTROGIN [Concomitant]
  11. PRIMPERAN INJ [Concomitant]
  12. GLUCOSE [Concomitant]
  13. KIDMIN [Concomitant]
  14. ELEMENMIC [Concomitant]
  15. MAGNESIUM SULFATE [Concomitant]
  16. ELCITONIN [Concomitant]
  17. ADONA (AC-17) [Concomitant]
  18. CIPROXAN [Concomitant]
  19. VANCOMYCIN [Concomitant]
  20. SOLU-MEDROL [Concomitant]
  21. VEEN-F [Concomitant]
  22. DORMICUM [Concomitant]
  23. LEPETAN [Concomitant]
  24. PROGRAF [Concomitant]
  25. ELASPOL [Concomitant]
  26. HUMULIN R [Concomitant]
  27. WATER FOR INJECTION [Concomitant]
  28. IMMUNE GLOBULIN (HUMAN) [Concomitant]
  29. BISOLVON [Concomitant]
  30. OMEPRAL [Concomitant]
  31. ISOZOL [Concomitant]
  32. NOVO HEPARIN CALCIUM [Concomitant]
  33. SODIUM CHLORIDE INJ [Concomitant]
  34. CALCICOL [Concomitant]
  35. PANTOL [Concomitant]
  36. FOSCAVIR [Concomitant]
  37. ALBUMIN (HUMAN) [Concomitant]
  38. HICALIQ [Concomitant]
  39. AMINO ACID INJ [Concomitant]
  40. DIGILANOGEN C [Concomitant]
  41. CERCINE [Concomitant]
  42. ALEVIATIN [Concomitant]
  43. OMEGACIN [Concomitant]

REACTIONS (3)
  - BLOOD CREATININE INCREASED [None]
  - HYPERBILIRUBINAEMIA [None]
  - RESPIRATORY FAILURE [None]
